FAERS Safety Report 12868964 (Version 2)
Quarter: 2016Q4

REPORT INFORMATION
  Report Type: Spontaneous
  Country: US (occurrence: US)
  Receive Date: 20161021
  Receipt Date: 20161027
  Transmission Date: 20170207
  Serious: No
  Sender: FDA-Public Use
  Company Number: US-PFIZER INC-2016460157

PATIENT
  Age: 9 Decade
  Sex: Male
  Weight: 70 kg

DRUGS (1)
  1. SUTENT [Suspect]
     Active Substance: SUNITINIB MALATE
     Indication: RENAL CANCER
     Dosage: 37.5 MG, CYCLIC (3 WEEKS ON THEN A WEEK OR 10 DAYS OFF)
     Route: 048
     Dates: start: 2013

REACTIONS (1)
  - Hypertension [Unknown]
